FAERS Safety Report 17830235 (Version 1)
Quarter: 2020Q2

REPORT INFORMATION
  Report Type: Spontaneous
  Country: US (occurrence: US)
  Receive Date: 20200527
  Receipt Date: 20200527
  Transmission Date: 20200714
  Serious: Yes (Other)
  Sender: FDA-Public Use
  Company Number: NVSC2020US145006

PATIENT

DRUGS (3)
  1. EVEROLIMUS. [Suspect]
     Active Substance: EVEROLIMUS
     Indication: HEPATOCELLULAR CARCINOMA
     Dosage: 7.5 MG PER FLAT DOSE
     Route: 048
  2. LEUPROLIDE [Suspect]
     Active Substance: LEUPROLIDE
     Indication: HEPATOCELLULAR CARCINOMA
     Dosage: 7.5 MG PER FLAT DOSE
     Route: 048
  3. LETROZOLE. [Suspect]
     Active Substance: LETROZOLE
     Indication: HEPATOCELLULAR CARCINOMA
     Dosage: 2.5 MG PER FALT DOSE
     Route: 048

REACTIONS (2)
  - Lipase increased [Unknown]
  - Product use in unapproved indication [Unknown]
